FAERS Safety Report 8801439 (Version 1)
Quarter: 2012Q4

REPORT INFORMATION
  Report Type: Report from Study
  Country: AU (occurrence: AU)
  Receive Date: 20120921
  Receipt Date: 20120921
  Transmission Date: 20130627
  Serious: Yes (Other)
  Sender: FDA-Public Use
  Company Number: AU-ROCHE-1134100

PATIENT
  Age: 67 Year
  Sex: Female

DRUGS (4)
  1. ROACTEMRA [Suspect]
     Indication: RHEUMATOID ARTHRITIS
     Route: 042
     Dates: start: 20120609
  2. CRESTOR [Concomitant]
     Indication: BLOOD CHOLESTEROL
     Route: 048
  3. MICARDIS PLUS [Concomitant]
     Indication: HYPERTENSION
     Route: 048
  4. CARDIZEM [Concomitant]
     Route: 065

REACTIONS (1)
  - Renal impairment [Unknown]
